FAERS Safety Report 12434341 (Version 3)
Quarter: 2016Q3

REPORT INFORMATION
  Report Type: Report from Study
  Country: US (occurrence: US)
  Receive Date: 20160603
  Receipt Date: 20160802
  Transmission Date: 20161109
  Serious: No
  Sender: FDA-Public Use
  Company Number: US-SA-2016SA001790

PATIENT
  Age: 64 Year
  Sex: Male

DRUGS (1)
  1. LEMTRADA [Suspect]
     Active Substance: ALEMTUZUMAB
     Indication: MULTIPLE SCLEROSIS
     Route: 041
     Dates: start: 20151214, end: 20151218

REACTIONS (9)
  - Petechiae [Recovered/Resolved]
  - Cough [Recovering/Resolving]
  - Nervousness [Recovered/Resolved]
  - Eye swelling [Recovering/Resolving]
  - Nasopharyngitis [Unknown]
  - Headache [Recovering/Resolving]
  - Therapeutic response unexpected [Unknown]
  - Sinusitis [Recovering/Resolving]
  - Rhinorrhoea [Not Recovered/Not Resolved]

NARRATIVE: CASE EVENT DATE: 201512
